FAERS Safety Report 6450500-8 (Version None)
Quarter: 2009Q4

REPORT INFORMATION
  Report Type: 
  Country: None (occurrence: None)
  Receive Date: 20091123
  Receipt Date: 20091110
  Transmission Date: 20100525
  Serious: Yes (Hospitalization)
  Sender: FDA-Public Use
  Company Number: PHHO2009JP14259

PATIENT
  Sex: Male
  Weight: 60 kg

DRUGS (16)
  1. BLINDED NO TREATMENT RECEIVED NOMED [Suspect]
     Indication: PANCREATIC NEUROENDOCRINE TUMOUR
     Dosage: DOUBLE BLIND
     Route: 048
     Dates: start: 20080410
  2. BLINDED PLACEBO COMP-PLA+ [Suspect]
     Indication: PANCREATIC NEUROENDOCRINE TUMOUR
     Dosage: DOUBLE BLIND
     Route: 048
     Dates: start: 20080410
  3. BLINDED RAD 666 RAD+TAB+CMAS [Suspect]
     Indication: PANCREATIC NEUROENDOCRINE TUMOUR
     Dosage: DOUBLE BLIND
     Route: 048
     Dates: start: 20080410
  4. RAD001 [Suspect]
     Indication: PANCREATIC NEUROENDOCRINE TUMOUR
     Dosage: 10 MG / DAY
     Route: 048
     Dates: start: 20080710, end: 20080820
  5. RAD001 [Suspect]
     Dosage: 10 MG / DAY
     Route: 048
     Dates: start: 20080828, end: 20081012
  6. RAD001 [Suspect]
     Dosage: 10 MG / DAY
     Route: 048
     Dates: start: 20081016, end: 20091107
  7. PARIET [Concomitant]
     Indication: GASTRINOMA
  8. SEVEN-E [Concomitant]
     Indication: PANCREATITIS CHRONIC
  9. PROMAC [Concomitant]
     Indication: GASTRINOMA
  10. HARNAL [Concomitant]
     Indication: BENIGN PROSTATIC HYPERPLASIA
  11. ALLEGRA [Concomitant]
     Indication: RASH
  12. GARASONE [Concomitant]
     Indication: RASH
  13. KERATINAMIN [Concomitant]
     Indication: DRY SKIN
  14. NERISONA [Concomitant]
     Indication: RASH
  15. SANDOSTATIN [Concomitant]
  16. DIOVAN [Concomitant]
     Indication: HYPERTENSION

REACTIONS (7)
  - ACUTE CORONARY SYNDROME [None]
  - ARTERIOSCLEROSIS CORONARY ARTERY [None]
  - CHEST DISCOMFORT [None]
  - MALAISE [None]
  - PYREXIA [None]
  - VENTRICULAR HYPOKINESIA [None]
  - VOMITING [None]
